FAERS Safety Report 18401067 (Version 2)
Quarter: 2021Q2

REPORT INFORMATION
  Report Type: Spontaneous
  Country: JP (occurrence: JP)
  Receive Date: 20201019
  Receipt Date: 20210408
  Transmission Date: 20210717
  Serious: Yes (Other)
  Sender: FDA-Public Use
  Company Number: JP-BAYER-2020-220281

PATIENT
  Age: 70 Year
  Sex: Male

DRUGS (1)
  1. XOFIGO [Suspect]
     Active Substance: RADIUM RA-223 DICHLORIDE
     Indication: HORMONE-REFRACTORY PROSTATE CANCER
     Dosage: UNK

REACTIONS (4)
  - Prostatic specific antigen increased [None]
  - Bone scan abnormal [Not Recovered/Not Resolved]
  - Metastases to bone [Not Recovered/Not Resolved]
  - Adverse event [None]

NARRATIVE: CASE EVENT DATE: 20170807
